FAERS Safety Report 4625297-4 (Version None)
Quarter: 2005Q1

REPORT INFORMATION
  Report Type: 
  Country: None (occurrence: None)
  Receive Date: 20050107
  Receipt Date: 20041007
  Transmission Date: 20050727
  Serious: No
  Sender: FDA-Public Use
  Company Number: 235094K04USA

PATIENT
  Age: 40 Year
  Sex: Female

DRUGS (5)
  1. REBIF [Suspect]
     Indication: MULTIPLE SCLEROSIS
     Dosage: 44 MCG, 3 IN 1 WEEKS
     Dates: start: 20040225
  2. AMITRIPTYLINE HCL TAB [Concomitant]
  3. TIZANIDINE HYDROCHLORIDE [Concomitant]
  4. CLONAZEPAM [Concomitant]
  5. IRON [Concomitant]

REACTIONS (5)
  - AFFECT LABILITY [None]
  - ANXIETY [None]
  - EMOTIONAL DISORDER [None]
  - INJECTION SITE ERYTHEMA [None]
  - INJECTION SITE REACTION [None]
